FAERS Safety Report 8157654-6 (Version None)
Quarter: 2012Q1

REPORT INFORMATION
  Report Type: 
  Country: None (occurrence: None)
  Receive Date: 20120222
  Receipt Date: 20120209
  Transmission Date: 20120608
  Serious: Yes (Other)
  Sender: FDA-Public Use
  Company Number: US-ELI_LILLY_AND_COMPANY-US201112005918

PATIENT
  Sex: Female
  Weight: 69.3 kg

DRUGS (17)
  1. NECITUMUMAB (11F8) (LY3012211) [Suspect]
     Indication: NON-SMALL CELL LUNG CANCER STAGE IV
     Dosage: 800 MG, EVERY 21 DAYS/CYCLE
     Route: 042
     Dates: start: 20110929
  2. PERCOCET [Concomitant]
     Dosage: UNK
     Dates: start: 20110824
  3. MANNITOL [Concomitant]
     Dosage: 25 %, UNKNOWN
     Dates: start: 20110929
  4. BACTROBAN                               /NET/ [Concomitant]
     Dosage: UNK
     Dates: start: 20111107
  5. APREPITANT [Concomitant]
     Dosage: UNK
     Dates: start: 20110929
  6. GEMCITABINE HYDROCHLORIDE [Suspect]
     Indication: NON-SMALL CELL LUNG CANCER STAGE IV
     Dosage: 2200 MG, EVERY 21 DAYS/CYCLE
     Route: 042
     Dates: start: 20110929
  7. PRILOSEC [Concomitant]
     Dosage: UNK
     Dates: start: 20111018
  8. SODIUM CHLORIDE [Concomitant]
     Dosage: UNK
     Dates: start: 20110929
  9. PALONOSETRON [Concomitant]
     Dosage: UNK
     Dates: start: 20110929
  10. AMMONIUM LACTATE [Concomitant]
     Dosage: UNK
     Dates: start: 20111018
  11. DEXAMETHASONE [Concomitant]
     Dosage: UNK
     Dates: start: 20110929
  12. CLINDAMYCIN [Concomitant]
     Dosage: UNK
     Dates: start: 20111018
  13. CISPLATIN [Suspect]
     Indication: NON-SMALL CELL LUNG CANCER STAGE IV
     Dosage: 130 MG,  EVERY 21 DAYS/CYCLE
     Route: 042
     Dates: start: 20110929
  14. SENNA [Concomitant]
     Dosage: UNK
     Dates: start: 20110824
  15. ONDANSETRON [Concomitant]
     Dosage: UNK
     Dates: start: 20110929
  16. SIMVASTATIN [Concomitant]
     Dosage: UNK
  17. DOCUSATE [Concomitant]
     Dosage: UNK
     Dates: start: 20110824

REACTIONS (1)
  - EMBOLISM [None]
